FAERS Safety Report 12980038 (Version 2)
Quarter: 2016Q4

REPORT INFORMATION
  Report Type: Spontaneous
  Country: US (occurrence: US)
  Receive Date: 20161128
  Receipt Date: 20161201
  Transmission Date: 20170207
  Serious: Yes (Other)
  Sender: FDA-Public Use
  Company Number: US-SA-2016SA214274

PATIENT
  Age: 29 Year
  Sex: Female

DRUGS (1)
  1. ICY HOT MEDICATED NO MESS APPLICATOR [Suspect]
     Active Substance: MENTHOL
     Indication: MYALGIA
     Route: 065
     Dates: start: 20161116, end: 20161116

REACTIONS (3)
  - Blister [Unknown]
  - Erythema [Unknown]
  - Burns second degree [Unknown]

NARRATIVE: CASE EVENT DATE: 20161116
